FAERS Safety Report 6161178-5 (Version None)
Quarter: 2009Q2

REPORT INFORMATION
  Report Type: 
  Country: None (occurrence: None)
  Receive Date: 20090421
  Receipt Date: 20070411
  Transmission Date: 20091009
  Serious: Yes (Other)
  Sender: FDA-Public Use
  Company Number: US-ASTRAZENECA-2006UW10943

PATIENT
  Age: 10789 Day
  Sex: Female
  Weight: 77.1 kg

DRUGS (31)
  1. SEROQUEL [Suspect]
     Indication: BIPOLAR DISORDER
     Dosage: 50 - 1200 MG
     Route: 048
     Dates: start: 19990802
  2. SEROQUEL [Suspect]
     Indication: SCHIZOPHRENIA, PARANOID TYPE
     Dosage: 50 - 1200 MG
     Route: 048
     Dates: start: 19990802
  3. SEROQUEL [Suspect]
     Indication: DEPRESSION
     Dosage: 50 - 1200 MG
     Route: 048
     Dates: start: 19990802
  4. SEROQUEL [Suspect]
     Indication: PSYCHOTIC DISORDER
     Dosage: 50 - 1200 MG
     Route: 048
     Dates: start: 19990802
  5. ZYPREXA [Suspect]
  6. KLONOPIN [Concomitant]
  7. RISPERDAL [Concomitant]
  8. DEPAKOTE [Concomitant]
  9. REMERON [Concomitant]
  10. ZIPRASIDONE HCL [Concomitant]
  11. TIZANIDINE HCL [Concomitant]
  12. L-THYROX [Concomitant]
  13. HALDOL [Concomitant]
  14. CARISOPRODOL [Concomitant]
  15. TOPAMAX [Concomitant]
  16. LORTAB [Concomitant]
  17. PROLIXIN DECANOATE [Concomitant]
  18. GABITRIL [Concomitant]
  19. SYNTHROID [Concomitant]
  20. ALBUTEROL [Concomitant]
  21. FLOVENT [Concomitant]
  22. VIOXX [Concomitant]
  23. TEGRETOL [Concomitant]
  24. BENZTROPINE MESYLATE [Concomitant]
  25. ABILIFY [Concomitant]
  26. GLUCOSAMINE [Concomitant]
  27. ATENOLOL [Concomitant]
  28. ATROVENT [Concomitant]
  29. ACETAMINOPHEN [Concomitant]
  30. CECLOR [Concomitant]
  31. ATIVAN [Concomitant]

REACTIONS (32)
  - ACNE [None]
  - ALCOHOL POISONING [None]
  - ANXIETY DISORDER [None]
  - ASTHMA [None]
  - COLITIS [None]
  - DIABETES MELLITUS [None]
  - DIVERTICULUM [None]
  - DRUG ABUSE [None]
  - DYSPNOEA [None]
  - GALACTORRHOEA [None]
  - HAEMATOCHEZIA [None]
  - HEADACHE [None]
  - HOMICIDAL IDEATION [None]
  - HYPOTHYROIDISM [None]
  - INSOMNIA [None]
  - LIBIDO DECREASED [None]
  - LIMB INJURY [None]
  - MYALGIA [None]
  - NEURITIS [None]
  - NICOTINE DEPENDENCE [None]
  - OTITIS MEDIA [None]
  - PANIC ATTACK [None]
  - PARAESTHESIA [None]
  - PHARYNGITIS [None]
  - PNEUMONIA [None]
  - ROAD TRAFFIC ACCIDENT [None]
  - SUICIDAL IDEATION [None]
  - TENDONITIS [None]
  - TOOTH ABSCESS [None]
  - TOOTHACHE [None]
  - URINARY TRACT INFECTION [None]
  - WEIGHT INCREASED [None]
